FAERS Safety Report 9554339 (Version 5)
Quarter: 2013Q4

REPORT INFORMATION
  Report Type: Report from Study
  Country: ES (occurrence: ES)
  Receive Date: 20130925
  Receipt Date: 20131220
  Transmission Date: 20140711
  Serious: Yes (Hospitalization)
  Sender: FDA-Public Use
  Company Number: ES-PFIZER INC-2013265922

PATIENT
  Age: 66 Year
  Sex: Female

DRUGS (11)
  1. TOFACITINIB CITRATE [Suspect]
     Indication: RHEUMATOID ARTHRITIS
     Dosage: 10 MG, 2X/DAY
     Route: 048
     Dates: start: 20090908, end: 20130702
  2. ACECLOFENAC [Concomitant]
     Indication: RHEUMATOID ARTHRITIS
     Dosage: UNK
     Dates: start: 20080117
  3. METHYLPREDNISOLONE [Concomitant]
     Indication: RHEUMATOID ARTHRITIS
     Dosage: UNK
     Dates: start: 20080117
  4. LEFLUNOMIDE [Concomitant]
     Indication: RHEUMATOID ARTHRITIS
     Dosage: UNK
     Dates: start: 20081215
  5. ENALAPRIL [Concomitant]
     Indication: HYPERTENSION
     Dosage: UNK
     Dates: start: 20090908
  6. OMEPRAZOL [Concomitant]
     Indication: PROPHYLAXIS
     Dosage: UNK
     Dates: start: 200711
  7. TROMALYT [Concomitant]
     Indication: CARDIOVASCULAR EVENT PROPHYLAXIS
     Dosage: UNK
     Dates: start: 201004
  8. IDEOS [Concomitant]
     Indication: OSTEOPENIA
     Dosage: UNK
     Dates: start: 20071008
  9. IBANDRONATE [Concomitant]
     Indication: OSTEOPENIA
     Dosage: UNK
     Dates: start: 20071008
  10. HIBOR [Concomitant]
     Indication: THROMBOSIS PROPHYLAXIS
     Dosage: 3500 UNK, 4X/DAY
     Route: 058
     Dates: start: 20130704
  11. TRAMADOL/ACETAMINOPHEN [Concomitant]
     Indication: PAIN
     Dosage: UNK, 2X/DAY
     Route: 048
     Dates: start: 20130704

REACTIONS (1)
  - Postoperative wound infection [Recovered/Resolved]
